FAERS Safety Report 7784124-7 (Version None)
Quarter: 2011Q3

REPORT INFORMATION
  Report Type: 
  Country: None (occurrence: None)
  Receive Date: 20110928
  Receipt Date: 20110919
  Transmission Date: 20111222
  Serious: Yes (Other)
  Sender: FDA-Public Use
  Company Number: TW-BRISTOL-MYERS SQUIBB COMPANY-16069924

PATIENT
  Age: 19 Year
  Sex: Male

DRUGS (2)
  1. RISPERIDONE [Concomitant]
  2. ARIPIPRAZOLE [Suspect]
     Indication: SCHIZOPHRENIA, PARANOID TYPE

REACTIONS (2)
  - ABDOMINAL PAIN UPPER [None]
  - HICCUPS [None]
